FAERS Safety Report 8996622 (Version 2)
Quarter: 2013Q3

REPORT INFORMATION
  Report Type: Spontaneous
  Country: FR (occurrence: FR)
  Receive Date: 20130102
  Receipt Date: 20130805
  Transmission Date: 20140515
  Serious: Yes (Other)
  Sender: FDA-Public Use
  Company Number: FR-ASTRAZENECA-2012SE95447

PATIENT
  Age: 16515 Day
  Sex: Female
  Weight: 83 kg

DRUGS (6)
  1. BRILIQUE [Suspect]
     Indication: MYOCARDIAL INFARCTION
     Route: 048
     Dates: start: 20121108
  2. ESOMEPRAZOLE [Suspect]
     Indication: MYOCARDIAL INFARCTION
     Route: 048
     Dates: start: 20121108
  3. RAMIPRIL [Suspect]
     Indication: MYOCARDIAL INFARCTION
     Route: 048
     Dates: start: 20121108
  4. KARDEGIC [Suspect]
     Indication: MYOCARDIAL INFARCTION
     Route: 048
     Dates: start: 20121108
  5. ATORVASTATINE PFIZER [Suspect]
     Indication: MYOCARDIAL INFARCTION
     Route: 048
     Dates: start: 201211, end: 20121214
  6. BISOPROLOL [Suspect]
     Indication: MYOCARDIAL INFARCTION
     Route: 048
     Dates: start: 20121108

REACTIONS (1)
  - Hepatic enzyme increased [Recovering/Resolving]
